FAERS Safety Report 24947062 (Version 1)
Quarter: 2025Q1

REPORT INFORMATION
  Report Type: Spontaneous
  Country: US (occurrence: US)
  Receive Date: 20250210
  Receipt Date: 20250210
  Transmission Date: 20250409
  Serious: Yes (Other)
  Sender: JOHNSON AND JOHNSON
  Company Number: US-JNJFOC-20250120764

PATIENT
  Age: 75 Year
  Sex: Female
  Weight: 62.6 kg

DRUGS (1)
  1. TREMFYA [Suspect]
     Active Substance: GUSELKUMAB
     Indication: Colitis ulcerative
     Route: 041

REACTIONS (2)
  - Breast cancer [Not Recovered/Not Resolved]
  - Circumstance or information capable of leading to medication error [Unknown]
